FAERS Safety Report 7344417-4 (Version None)
Quarter: 2011Q1

REPORT INFORMATION
  Report Type: 
  Country: None (occurrence: None)
  Receive Date: 20110310
  Receipt Date: 20110305
  Transmission Date: 20110831
  Serious: Yes (Hospitalization)
  Sender: FDA-Public Use
  Company Number: RU-ROCHE-763499

PATIENT
  Age: 59 Year
  Sex: Female

DRUGS (2)
  1. BONIVA [Suspect]
     Indication: OSTEOPOROSIS
     Route: 042
     Dates: start: 20090901, end: 20110201
  2. CALCIUM-D3 NYCOMED [Concomitant]
     Indication: OSTEOPOROSIS
     Dosage: FREQUENCY: DAILY.
     Route: 048

REACTIONS (1)
  - RHEUMATOID ARTHRITIS [None]
